FAERS Safety Report 4953111-6 (Version None)
Quarter: 2006Q1

REPORT INFORMATION
  Report Type: 
  Country: None (occurrence: None)
  Receive Date: 20060321
  Receipt Date: 20060313
  Transmission Date: 20060701
  Serious: Yes (Hospitalization)
  Sender: FDA-Public Use
  Company Number: 2006BI004001

PATIENT
  Age: 47 Year
  Sex: Male
  Weight: 85.2762 kg

DRUGS (4)
  1. AVONEX [Suspect]
     Indication: MULTIPLE SCLEROSIS
     Dosage: 30 UG; QW; IM
     Route: 030
     Dates: start: 20051201, end: 20060101
  2. AVONEX [Suspect]
     Indication: MULTIPLE SCLEROSIS
     Dosage: 7.5 UG; QW; IM
     Route: 030
     Dates: start: 20060201, end: 20060201
  3. AVONEX [Suspect]
     Indication: MULTIPLE SCLEROSIS
     Dosage: 15 UG; QW; IM
     Route: 030
     Dates: start: 20060201, end: 20060201
  4. AVONEX [Suspect]
     Indication: MULTIPLE SCLEROSIS
     Dosage: 22.5 UG QW; IM
     Route: 030
     Dates: start: 20060201

REACTIONS (5)
  - ASTHENIA [None]
  - DIARRHOEA [None]
  - DYSKINESIA [None]
  - INFLUENZA LIKE ILLNESS [None]
  - VIRAL INFECTION [None]
